FAERS Safety Report 10174595 (Version 1)
Quarter: 2014Q2

REPORT INFORMATION
  Report Type: Spontaneous
  Country: US (occurrence: None)
  Receive Date: 20140514
  Receipt Date: 20140514
  Transmission Date: 20141212
  Serious: Yes (Disabling)
  Sender: FDA-Public Use
  Company Number: None

PATIENT
  Age: 22 Year
  Sex: Female
  Weight: 63.5 kg

DRUGS (1)
  1. LAMOTRIGINE [Suspect]
     Indication: AFFECTIVE DISORDER
     Dosage: 1/2 TAB, AT BEDTIME, TAKEN BY MOUTH
     Route: 048
     Dates: start: 20080414, end: 20140512

REACTIONS (6)
  - Rash erythematous [None]
  - Rash [None]
  - Rash [None]
  - Skin depigmentation [None]
  - Skin exfoliation [None]
  - Skin discolouration [None]
